FAERS Safety Report 7115242-4 (Version None)
Quarter: 2010Q4

REPORT INFORMATION
  Report Type: 
  Country: None (occurrence: None)
  Receive Date: 20101122
  Receipt Date: 20091231
  Transmission Date: 20110411
  Serious: No
  Sender: FDA-Public Use
  Company Number: A0837207A

PATIENT
  Age: 26 Year
  Sex: Female
  Weight: 59.1 kg

DRUGS (2)
  1. EVOCLIN [Suspect]
     Indication: ACNE
     Route: 061
     Dates: start: 20091201, end: 20091201
  2. ORTHO TRI-CYCLEN [Concomitant]

REACTIONS (2)
  - EYE SWELLING [None]
  - URTICARIA [None]
